FAERS Safety Report 24221780 (Version 2)
Quarter: 2024Q3

REPORT INFORMATION
  Report Type: Spontaneous
  Country: US (occurrence: US)
  Receive Date: 20240819
  Receipt Date: 20240829
  Transmission Date: 20241016
  Serious: Yes (Hospitalization, Other)
  Sender: CHEPLAPHARM
  Company Number: US-CHEPLA-2024010546

PATIENT
  Sex: Male
  Weight: 97.5 kg

DRUGS (5)
  1. QUETIAPINE [Suspect]
     Active Substance: QUETIAPINE
     Dosage: IN AM?DAILY DOSE: 200 MILLIGRAM
     Route: 048
  2. OLANZAPINE [Suspect]
     Active Substance: OLANZAPINE
     Indication: Bipolar disorder
  3. LITHIUM [Suspect]
     Active Substance: LITHIUM
  4. CAPLYTA [Suspect]
     Active Substance: LUMATEPERONE
     Dosage: DAILY DOSE: 42 MILLIGRAM
     Dates: start: 202306
  5. AUVELITY [Concomitant]
     Active Substance: BUPROPION HYDROCHLORIDE\DEXTROMETHORPHAN HYDROBROMIDE

REACTIONS (7)
  - Sexual dysfunction [Unknown]
  - Mania [Unknown]
  - Feeling abnormal [Unknown]
  - Hypersomnia [Unknown]
  - Weight increased [Unknown]
  - Dissociation [Unknown]
  - Memory impairment [Unknown]
